FAERS Safety Report 9681914 (Version 2)
Quarter: 2013Q4

REPORT INFORMATION
  Report Type: Report from Study
  Country: US (occurrence: US)
  Receive Date: 20131111
  Receipt Date: 20131203
  Transmission Date: 20140711
  Serious: Yes (Hospitalization)
  Sender: FDA-Public Use
  Company Number: US-US-EMD SERONO, INC.-7248270

PATIENT
  Age: 55 Year
  Sex: Male

DRUGS (3)
  1. REBIF [Suspect]
     Indication: MULTIPLE SCLEROSIS
     Route: 058
     Dates: start: 20121217
  2. COUMADIN                           /00014802/ [Concomitant]
     Indication: ATRIAL FIBRILLATION
  3. COUMADIN                           /00014802/ [Concomitant]
     Indication: MYOCARDIAL INFARCTION

REACTIONS (8)
  - Appendicitis [Unknown]
  - Multiple sclerosis relapse [Not Recovered/Not Resolved]
  - Procedural pain [Not Recovered/Not Resolved]
  - Dysuria [Not Recovered/Not Resolved]
  - Urine flow decreased [Not Recovered/Not Resolved]
  - Micturition disorder [Not Recovered/Not Resolved]
  - Urinary incontinence [Not Recovered/Not Resolved]
  - Injection site bruising [Unknown]
